FAERS Safety Report 18301708 (Version 3)
Quarter: 2020Q4

REPORT INFORMATION
  Report Type: Spontaneous
  Country: US (occurrence: US)
  Receive Date: 20200923
  Receipt Date: 20201022
  Transmission Date: 20210113
  Serious: Yes (Hospitalization, Other)
  Sender: FDA-Public Use
  Company Number: US-TORRENT-00010424

PATIENT
  Age: 48 Year
  Sex: Female
  Weight: 68 kg

DRUGS (3)
  1. SIMETHICONE (DIMETHICONE) [Concomitant]
     Active Substance: DIMETHICONE
     Indication: FLATULENCE
     Dosage: ONCE A DAY
  2. GERICARE [Concomitant]
     Indication: FAECES HARD
     Dosage: UNKNOWN
  3. CITALOPRAM HYDROBROMIDE TABLETS [Suspect]
     Active Substance: CITALOPRAM HYDROBROMIDE
     Indication: ANXIETY
     Dosage: 1 TABLET DAILY
     Dates: start: 20200825, end: 2020

REACTIONS (17)
  - Contusion [Recovered/Resolved]
  - Muscle twitching [Recovered/Resolved]
  - Pain of skin [Recovered/Resolved]
  - Nervous system disorder [Recovered/Resolved]
  - Hyperhidrosis [Recovered/Resolved]
  - Skin swelling [Recovered/Resolved]
  - Muscle spasms [Recovered/Resolved]
  - Feeling abnormal [Recovered/Resolved]
  - Illness [Recovered/Resolved]
  - Skin lesion [Recovered/Resolved]
  - Abdominal pain upper [Recovered/Resolved]
  - Abnormal dreams [Recovered/Resolved]
  - Abdominal distension [Recovered/Resolved]
  - Balance disorder [Recovered/Resolved]
  - Tinnitus [Recovered/Resolved]
  - Pruritus [Recovered/Resolved]
  - Palpitations [Recovered/Resolved]

NARRATIVE: CASE EVENT DATE: 2020
